FAERS Safety Report 25429482 (Version 1)
Quarter: 2025Q2

REPORT INFORMATION
  Report Type: Spontaneous
  Country: IL (occurrence: IL)
  Receive Date: 20250612
  Receipt Date: 20250612
  Transmission Date: 20250716
  Serious: Yes (Life-Threatening, Hospitalization, Other)
  Sender: SANOFI AVENTIS
  Company Number: IL-DialogSolutions-SAAVPROD-PI788845-C1

PATIENT
  Age: 72 Year
  Sex: Female

DRUGS (9)
  1. ENOXAPARIN SODIUM [Suspect]
     Active Substance: ENOXAPARIN SODIUM
     Dosage: 40 MG, BID
  2. WARFARIN SODIUM [Suspect]
     Active Substance: WARFARIN SODIUM
     Dosage: 2.5 MG, QD
     Dates: start: 1986
  3. INSULIN NOS [Concomitant]
     Active Substance: INSULIN NOS
     Indication: Type 2 diabetes mellitus
  4. OXYGEN [Concomitant]
     Active Substance: OXYGEN
  5. CAPTOPRIL [Concomitant]
     Active Substance: CAPTOPRIL
  6. SPIRONOLACTONE [Concomitant]
     Active Substance: SPIRONOLACTONE
  7. FUROSEMIDE [Concomitant]
     Active Substance: FUROSEMIDE
  8. DIGOXIN [Concomitant]
     Active Substance: DIGOXIN
  9. ALBUTEROL [Concomitant]
     Active Substance: ALBUTEROL
     Route: 055

REACTIONS (13)
  - Acquired haemophilia [Recovered/Resolved]
  - Dyspnoea [Recovered/Resolved]
  - Tachypnoea [Recovered/Resolved]
  - Rales [Recovered/Resolved]
  - Abdominal tenderness [Recovered/Resolved]
  - Oedema peripheral [Recovered/Resolved]
  - Lung infiltration [Recovered/Resolved]
  - Epistaxis [Recovered/Resolved]
  - Haematoma [Recovered/Resolved]
  - Haematuria [Recovered/Resolved]
  - Pulmonary haemorrhage [Recovered/Resolved]
  - Overdose [Recovered/Resolved]
  - Heparin-induced thrombocytopenia [Recovered/Resolved]

NARRATIVE: CASE EVENT DATE: 19960101
